FAERS Safety Report 6968548-3 (Version None)
Quarter: 2010Q3

REPORT INFORMATION
  Report Type: 
  Country: None (occurrence: None)
  Receive Date: 20100907
  Receipt Date: 20100906
  Transmission Date: 20110219
  Serious: Yes (Death, Other)
  Sender: FDA-Public Use
  Company Number: PHFR2010GB00639

PATIENT
  Sex: Female
  Weight: 60 kg

DRUGS (4)
  1. FEMARA [Suspect]
     Indication: BREAST CANCER METASTATIC
     Dosage: 2.5 MG, QD
     Dates: start: 20100504
  2. CITALOPRAM HYDROBROMIDE [Concomitant]
     Dosage: 20 MG/DAY
     Route: 048
  3. DIAZEPAM [Concomitant]
     Dosage: 2 MG/DAY
     Route: 048
  4. FOSAMAX [Concomitant]
     Dosage: 70 MG
     Route: 048

REACTIONS (3)
  - DEATH [None]
  - FEELING ABNORMAL [None]
  - MACULAR DEGENERATION [None]
